FAERS Safety Report 6163776-1 (Version None)
Quarter: 2009Q2

REPORT INFORMATION
  Report Type: 
  Country: None (occurrence: None)
  Receive Date: 20090422
  Receipt Date: 20090417
  Transmission Date: 20091009
  Serious: Yes (Other)
  Sender: FDA-Public Use
  Company Number: US-B.I. PHARMACEUTICALS,INC./RIDGEFIELD-2009-BP-03447BP

PATIENT
  Sex: Male

DRUGS (3)
  1. AGGRENOX [Suspect]
     Indication: TRANSIENT ISCHAEMIC ATTACK
     Dates: start: 20081101
  2. HYDROCHLOROTHIAZIDE [Concomitant]
     Dates: start: 20081201
  3. LISINOPRIL [Concomitant]
     Dates: start: 20081101

REACTIONS (2)
  - EPISTAXIS [None]
  - HYPERTENSION [None]
